FAERS Safety Report 4551430-9 (Version None)
Quarter: 2005Q1

REPORT INFORMATION
  Report Type: 
  Country: None (occurrence: None)
  Receive Date: 20050107
  Receipt Date: 20050104
  Transmission Date: 20050727
  Serious: Yes (Death, Hospitalization)
  Sender: FDA-Public Use
  Company Number: 2004044604

PATIENT
  Age: 77 Year
  Sex: Female

DRUGS (1)
  1. LIPITOR [Suspect]
     Indication: DYSLIPIDAEMIA
     Dosage: 10 MG (10 MG, 1 IN 1 D), ORAL
     Route: 048
     Dates: start: 20040501, end: 20040601

REACTIONS (4)
  - BRAIN NEOPLASM [None]
  - CEREBROVASCULAR ACCIDENT [None]
  - PULMONARY EMBOLISM [None]
  - THROMBOSIS [None]
